FAERS Safety Report 7425775-9 (Version None)
Quarter: 2011Q2

REPORT INFORMATION
  Report Type: 
  Country: None (occurrence: None)
  Receive Date: 20110420
  Receipt Date: 20110412
  Transmission Date: 20111010
  Serious: Yes (Other)
  Sender: FDA-Public Use
  Company Number: DE-BRISTOL-MYERS SQUIBB COMPANY-15616808

PATIENT
  Age: 75 Year
  Sex: Female
  Weight: 66 kg

DRUGS (1)
  1. ORENCIA [Suspect]
     Indication: POLYARTHRITIS
     Dosage: AFTER 1 INFUSION EVENT OCCURED
     Route: 042
     Dates: start: 20101215, end: 20110311

REACTIONS (2)
  - JOINT SWELLING [None]
  - HAEMARTHROSIS [None]
